FAERS Safety Report 7755464-2 (Version None)
Quarter: 2011Q3

REPORT INFORMATION
  Report Type: 
  Country: None (occurrence: None)
  Receive Date: 20110916
  Receipt Date: 20110913
  Transmission Date: 20111222
  Serious: Yes (Other)
  Sender: FDA-Public Use
  Company Number: US-PFIZER INC-2011189146

PATIENT
  Age: 87 Year
  Sex: Female
  Weight: 58.957 kg

DRUGS (1)
  1. ADVIL LIQUI-GELS [Suspect]
     Indication: MUSCLE SPASMS
     Dosage: 200 MG, 2X/DAY
     Route: 048
     Dates: start: 20110810

REACTIONS (4)
  - SWELLING FACE [None]
  - BLOOD PRESSURE INCREASED [None]
  - HYPERSENSITIVITY [None]
  - SWOLLEN TONGUE [None]
